FAERS Safety Report 23088343 (Version 1)
Quarter: 2023Q4

REPORT INFORMATION
  Report Type: Spontaneous
  Country: FR (occurrence: FR)
  Receive Date: 20231020
  Receipt Date: 20231020
  Transmission Date: 20240110
  Serious: Yes (Hospitalization, Other)
  Sender: FDA-Public Use
  Company Number: FR-AFSSAPS-NC2023001245

PATIENT
  Age: 83 Year
  Sex: Male
  Weight: 56 kg

DRUGS (3)
  1. BROMAZEPAM [Suspect]
     Active Substance: BROMAZEPAM
     Indication: Product used for unknown indication
     Dosage: 30 DOSAGE FORM, TOTAL
     Route: 048
     Dates: start: 20230825
  2. FLUOXETINE [Suspect]
     Active Substance: FLUOXETINE HYDROCHLORIDE
     Indication: Product used for unknown indication
     Dosage: 56 DOSAGE FORM, TOTAL
     Route: 048
     Dates: start: 20230825, end: 20230825
  3. ZOPICLONE [Suspect]
     Active Substance: ZOPICLONE
     Indication: Product used for unknown indication
     Dosage: 14 DOSAGE FORM
     Route: 048
     Dates: start: 20230825, end: 20230825

REACTIONS (3)
  - Coma [Recovered/Resolved]
  - Acute respiratory distress syndrome [Recovering/Resolving]
  - Pneumonia aspiration [Recovered/Resolved with Sequelae]

NARRATIVE: CASE EVENT DATE: 20230825
